FAERS Safety Report 9367423 (Version 1)
Quarter: 2013Q2

REPORT INFORMATION
  Report Type: Spontaneous
  Country: US (occurrence: US)
  Receive Date: 20130625
  Receipt Date: 20130625
  Transmission Date: 20140414
  Serious: No
  Sender: FDA-Public Use
  Company Number: US-ASTELLAS-2012US003961

PATIENT
  Sex: Female
  Weight: 113 kg

DRUGS (33)
  1. VESICARE [Suspect]
     Indication: HYPERTONIC BLADDER
     Dosage: 10 MG, UID/QD
     Route: 048
  2. VESICARE [Suspect]
     Indication: URGE INCONTINENCE
     Dosage: 5 MG, UID/QD
     Route: 048
     Dates: end: 20120813
  3. PRILOSEC                           /00661201/ [Concomitant]
     Indication: DYSPEPSIA
     Dosage: 40 MG, UID/QD
     Route: 048
  4. SPIRONOLACTONE [Concomitant]
     Indication: FLUID RETENTION
     Dosage: 25 MG, BID
     Route: 048
  5. DEMADEX [Concomitant]
     Indication: HYPERTENSION
     Dosage: 4 MG, PRN
     Route: 048
  6. DEMADEX [Concomitant]
     Dosage: 10 MG, UID/QD
     Route: 048
  7. EFFEXOR [Concomitant]
     Indication: DEPRESSION
     Dosage: 150 MG, UID/QD
     Route: 048
  8. ALLOPURINOL [Concomitant]
     Indication: GOUT
     Dosage: 100 MG, AFTER MEALS
     Route: 048
  9. ALLOPURINOL [Concomitant]
     Dosage: 100 MG, UID/QD
     Route: 048
  10. SYMBICORT [Concomitant]
     Indication: CHRONIC OBSTRUCTIVE PULMONARY DISEASE
     Dosage: 160/4.5 MG, 2 PUFFS BID
     Route: 055
  11. ALBUTEROL [Concomitant]
     Indication: ASTHMA
     Dosage: 2 PUFFS, QID
     Route: 055
  12. ALBUTEROL [Concomitant]
     Indication: CHRONIC OBSTRUCTIVE PULMONARY DISEASE
  13. LYRICA [Concomitant]
     Indication: FIBROMYALGIA
     Dosage: 150 MG, Q12 HOURS
     Route: 048
  14. FLUNISOLIDE [Concomitant]
     Indication: HYPERSENSITIVITY
     Dosage: 2 PUFFS EACH NOSTRIL, UID/QD
     Route: 045
  15. COQ-10 [Concomitant]
     Indication: SUPPLEMENTATION THERAPY
     Dosage: 100 MG, QHS
     Route: 048
  16. MIRALAX [Concomitant]
     Indication: CONSTIPATION
     Dosage: 1 DF, QHS
     Route: 048
  17. LACTULOSE [Concomitant]
     Indication: CONSTIPATION
     Dosage: 10 OZ, PRN
     Route: 048
  18. VICTOZA [Concomitant]
     Indication: DIABETES MELLITUS
     Dosage: 1.2 MG, UID/QD
     Route: 058
  19. LORTADINE [Concomitant]
     Indication: HYPERSENSITIVITY
     Dosage: 10 MG, UID/QD
     Route: 048
  20. GLUCOSAMINE [Concomitant]
     Indication: ARTHRITIS
     Dosage: 1 TABLET, BID
     Route: 048
  21. OMEGA 3 [Concomitant]
     Indication: SUPPLEMENTATION THERAPY
     Dosage: 100 MG, UID/QD
     Route: 048
  22. VITAMIN D [Concomitant]
     Indication: SUPPLEMENTATION THERAPY
     Dosage: 5000 U, UID/QD
     Route: 048
  23. GENTEAL [Concomitant]
     Indication: LACRIMATION DECREASED
     Dosage: 2 DROPS, PRN
     Route: 047
  24. THERAGRAN [Concomitant]
     Indication: VITAMIN SUPPLEMENTATION
     Dosage: 1 TABLET, UID/QD
     Route: 048
  25. MUCINEX [Concomitant]
     Indication: CHRONIC OBSTRUCTIVE PULMONARY DISEASE
     Dosage: 600 MG, Q12 HOURS
     Route: 048
  26. MUCINEX [Concomitant]
     Dosage: 400 MG, UNKNOWN/D
     Route: 048
  27. TESSALON PERLE [Concomitant]
     Indication: COUGH
     Dosage: 20 MG, BID, OR AS NECESSARY
     Route: 048
  28. TRIAMCINOLONE [Concomitant]
     Indication: GLOSSODYNIA
     Dosage: APPLY TO GUMS PRN
     Route: 061
  29. SPIRIVA [Concomitant]
     Indication: CHRONIC OBSTRUCTIVE PULMONARY DISEASE
     Dosage: UNK
     Route: 065
  30. ARICEPT [Concomitant]
     Indication: DEMENTIA ALZHEIMER^S TYPE
     Dosage: 5 MG, UID/QD
     Route: 048
  31. PRIMIDONE [Concomitant]
     Indication: TREMOR
     Dosage: 100 MG, UID/QD
     Route: 065
  32. TRIMETHOPRIM [Concomitant]
     Indication: URINARY TRACT INFECTION
     Dosage: 100 MG, UID/QD
     Route: 048
  33. ALEVE [Concomitant]
     Indication: PAIN
     Dosage: 2 DF, UID/QD
     Route: 048

REACTIONS (2)
  - Muscle disorder [None]
  - Constipation [Unknown]
